FAERS Safety Report 7612774-7 (Version None)
Quarter: 2011Q3

REPORT INFORMATION
  Report Type: 
  Country: None (occurrence: None)
  Receive Date: 20110708
  Receipt Date: 20110624
  Transmission Date: 20111222
  Serious: Yes (Other)
  Sender: FDA-Public Use
  Company Number: AUR-APL-2011-03684

PATIENT
  Age: 90 Year
  Sex: Female

DRUGS (6)
  1. LAMOTRIGINE [Suspect]
     Dosage: (125 MG, 1 D), ORAL
     Route: 048
  2. QUININE SULPHATE (QUININE SULFATE) [Concomitant]
  3. SENNA (SENNA ALEXANDRINA) [Concomitant]
  4. MACROGOL (MACROGOL) [Concomitant]
  5. ACETAMINOPHEN [Concomitant]
  6. MIRTAZAPINE [Concomitant]

REACTIONS (4)
  - NEUTROPENIA [None]
  - PNEUMONIA [None]
  - RENAL IMPAIRMENT [None]
  - LEUKOPENIA [None]
